FAERS Safety Report 5564726-9 (Version None)
Quarter: 2007Q4

REPORT INFORMATION
  Report Type: 
  Country: None (occurrence: None)
  Receive Date: 20071213
  Receipt Date: 20071129
  Transmission Date: 20080405
  Serious: Yes (Other)
  Sender: FDA-Public Use
  Company Number: 07-002352

PATIENT
  Sex: Female

DRUGS (2)
  1. FEMRING [Suspect]
     Indication: HORMONE REPLACEMENT THERAPY
     Dosage: 0.05MG, QD, VAGINAL
     Route: 067
     Dates: start: 20070221, end: 20070406
  2. CENESTIN [Suspect]
     Dates: start: 20070401

REACTIONS (19)
  - ABDOMINAL DISCOMFORT [None]
  - ABDOMINAL DISTENSION [None]
  - ABDOMINAL TENDERNESS [None]
  - ANOREXIA [None]
  - APHASIA [None]
  - BALANCE DISORDER [None]
  - BREAST TENDERNESS [None]
  - CONFUSIONAL STATE [None]
  - DECREASED APPETITE [None]
  - DEPRESSION [None]
  - DIZZINESS [None]
  - DYSARTHRIA [None]
  - FLUID RETENTION [None]
  - LIBIDO DECREASED [None]
  - MEMORY IMPAIRMENT [None]
  - MIGRAINE [None]
  - PHOTOPHOBIA [None]
  - SPEECH DISORDER [None]
  - VISION BLURRED [None]
